FAERS Safety Report 12632892 (Version 2)
Quarter: 2016Q3

REPORT INFORMATION
  Report Type: Spontaneous
  Country: US (occurrence: US)
  Receive Date: 20160808
  Receipt Date: 20160808
  Transmission Date: 20161109
  Serious: No
  Sender: FDA-Public Use
  Company Number: US-BEH-2015057467

PATIENT
  Sex: Female
  Weight: 81 kg

DRUGS (16)
  1. DAILY MULTIPLE VITAMIN [Concomitant]
  2. HIZENTRA [Suspect]
     Active Substance: HUMAN IMMUNOGLOBULIN G
     Indication: IMMUNODEFICIENCY COMMON VARIABLE
     Route: 058
  3. BUPROPION SR [Concomitant]
     Active Substance: BUPROPION
  4. ALEVE [Concomitant]
     Active Substance: NAPROXEN SODIUM
  5. EPIPEN [Concomitant]
     Active Substance: EPINEPHRINE
  6. BLACK COHOSH [Concomitant]
     Active Substance: BLACK COHOSH
  7. DIPHENHYDRAMINE. [Concomitant]
     Active Substance: DIPHENHYDRAMINE
  8. L-M-X [Concomitant]
  9. LEVAQUIN [Concomitant]
     Active Substance: LEVOFLOXACIN
  10. GLUCOSAMINE [Concomitant]
     Active Substance: GLUCOSAMINE
  11. TRIAMTERENE-HCTZ [Concomitant]
     Active Substance: HYDROCHLOROTHIAZIDE\TRIAMTERENE
  12. BENZONATATE. [Concomitant]
     Active Substance: BENZONATATE
  13. MELOXICAM. [Concomitant]
     Active Substance: MELOXICAM
  14. ADVIL [Concomitant]
     Active Substance: IBUPROFEN
  15. ACETAMINOPHEN. [Concomitant]
     Active Substance: ACETAMINOPHEN
  16. LIDOCAINE/PRILOCAINE [Concomitant]
     Active Substance: LIDOCAINE\PRILOCAINE

REACTIONS (1)
  - Upper respiratory tract infection [Unknown]
